FAERS Safety Report 14441501 (Version 2)
Quarter: 2018Q3

REPORT INFORMATION
  Report Type: Spontaneous
  Country: GB (occurrence: ES)
  Receive Date: 20180125
  Receipt Date: 20180807
  Transmission Date: 20181010
  Serious: Yes (Hospitalization, Other)
  Sender: FDA-Public Use
  Company Number: GB-SA-2018SA016272

PATIENT
  Age: 78 Year
  Sex: Male

DRUGS (4)
  1. CEFTAZIDIME. [Suspect]
     Active Substance: CEFTAZIDIME
     Dosage: 2 G,TID
     Route: 042
  2. LEFLUNOMIDE. [Suspect]
     Active Substance: LEFLUNOMIDE
     Indication: RHEUMATOID ARTHRITIS
     Dosage: UNK UNK,UNK
     Route: 065
  3. CEFDITOREN [Suspect]
     Active Substance: CEFDITOREN
     Indication: ESCHERICHIA INFECTION
     Dosage: 400 MG,BID FOR 21 DYAS
     Route: 048
  4. OXYGEN. [Concomitant]
     Active Substance: OXYGEN

REACTIONS (5)
  - Pyrexia [Recovering/Resolving]
  - Chronic obstructive pulmonary disease [Recovering/Resolving]
  - Sputum purulent [Recovering/Resolving]
  - Bacterial infection [Recovering/Resolving]
  - Rhonchi [Recovering/Resolving]
